FAERS Safety Report 16630631 (Version 1)
Quarter: 2019Q3

REPORT INFORMATION
  Report Type: Spontaneous
  Country: US (occurrence: US)
  Receive Date: 20190725
  Receipt Date: 20190725
  Transmission Date: 20191004
  Serious: No
  Sender: FDA-Public Use
  Company Number: US-JNJFOC-20190730113

PATIENT
  Sex: Female

DRUGS (2)
  1. ROGAINE [Suspect]
     Active Substance: MINOXIDIL
     Indication: ALOPECIA
     Route: 061
  2. LONITEN [Suspect]
     Active Substance: MINOXIDIL
     Indication: ALOPECIA
     Route: 048

REACTIONS (3)
  - Alopecia [Unknown]
  - Hair growth abnormal [Unknown]
  - Inappropriate schedule of product administration [Unknown]
